FAERS Safety Report 12941443 (Version 1)
Quarter: 2016Q4

REPORT INFORMATION
  Report Type: Spontaneous
  Country: US (occurrence: US)
  Receive Date: 20161115
  Receipt Date: 20161115
  Transmission Date: 20170207
  Serious: Yes (Hospitalization)
  Sender: FDA-Public Use
  Company Number: None

PATIENT
  Age: 95 Year
  Sex: Female
  Weight: 79.9 kg

DRUGS (1)
  1. HYDROMORPHONE [Suspect]
     Active Substance: HYDROMORPHONE
     Indication: PAIN
     Dosage: HYDROMORPHONE - DATES OF USE [RECENT]
     Route: 042

REACTIONS (4)
  - Unresponsive to stimuli [None]
  - Joint injury [None]
  - Cardio-respiratory arrest [None]
  - Fall [None]

NARRATIVE: CASE EVENT DATE: 20151118
